FAERS Safety Report 5769793-5 (Version None)
Quarter: 2008Q2

REPORT INFORMATION
  Report Type: 
  Country: None (occurrence: None)
  Receive Date: 20080612
  Receipt Date: 20080408
  Transmission Date: 20081010
  Serious: No
  Sender: FDA-Public Use
  Company Number: US-ABBOTT-08P-163-0446147-00

PATIENT
  Sex: Male
  Weight: 83.536 kg

DRUGS (12)
  1. HUMIRA [Suspect]
     Indication: ANKYLOSING SPONDYLITIS
     Route: 058
     Dates: start: 20070101
  2. WARFARIN SODIUM [Concomitant]
     Indication: ATRIAL FIBRILLATION
     Route: 048
  3. WARFARIN SODIUM [Concomitant]
     Route: 048
  4. WARFARIN SODIUM [Concomitant]
     Route: 048
  5. COSOPT [Concomitant]
     Indication: GLAUCOMA
     Dosage: 3 DROPS EACH EYE DAILY
     Route: 047
  6. BRIMONIDINE TARTRATE [Concomitant]
     Indication: GLAUCOMA
     Route: 047
  7. BIMATOPROST [Concomitant]
     Indication: GLAUCOMA
     Route: 047
  8. OMEPRAZOLE [Concomitant]
     Indication: DRUG USE FOR UNKNOWN INDICATION
     Route: 048
  9. CELECOXIB [Concomitant]
     Indication: PAIN
     Route: 048
  10. TRAMADOL HCL [Concomitant]
     Indication: PAIN
     Route: 048
  11. CYCLOBENZAPRINE HCL [Concomitant]
     Indication: PAIN
     Route: 048
  12. LORATADINE [Concomitant]
     Indication: SEASONAL ALLERGY
     Route: 048

REACTIONS (1)
  - INJECTION SITE PAIN [None]
